FAERS Safety Report 12725768 (Version 1)
Quarter: 2016Q3

REPORT INFORMATION
  Report Type: Spontaneous
  Country: US (occurrence: US)
  Receive Date: 20160908
  Receipt Date: 20160908
  Transmission Date: 20161109
  Serious: No
  Sender: FDA-Public Use
  Company Number: US-BRISTOL-MYERS SQUIBB COMPANY-BMS-2016-071576

PATIENT
  Sex: Female
  Weight: 52.15 kg

DRUGS (1)
  1. OPDIVO [Suspect]
     Active Substance: NIVOLUMAB
     Indication: NON-SMALL CELL LUNG CANCER
     Dosage: UNK
     Route: 065

REACTIONS (6)
  - Feeling cold [Unknown]
  - Photosensitivity reaction [Unknown]
  - Skin exfoliation [Unknown]
  - Erythema [Recovered/Resolved]
  - Decreased appetite [Unknown]
  - Nausea [Unknown]
